FAERS Safety Report 14418242 (Version 3)
Quarter: 2018Q3

REPORT INFORMATION
  Report Type: Spontaneous
  Country: US (occurrence: US)
  Receive Date: 20180122
  Receipt Date: 20180713
  Transmission Date: 20181010
  Serious: No
  Sender: FDA-Public Use
  Company Number: US-INTERCEPT-PMOCA2017001225

PATIENT

DRUGS (6)
  1. NEXIUM [Concomitant]
     Active Substance: ESOMEPRAZOLE MAGNESIUM
  2. SYNTHROID [Concomitant]
     Active Substance: LEVOTHYROXINE SODIUM
  3. ESTRACE [Concomitant]
     Active Substance: ESTRADIOL
  4. URSODEOXYCHOLIC ACID [Concomitant]
     Active Substance: URSODIOL
  5. PILOCARPINE. [Concomitant]
     Active Substance: PILOCARPINE
  6. OCALIVA [Suspect]
     Active Substance: OBETICHOLIC ACID
     Indication: PRIMARY BILIARY CHOLANGITIS
     Dosage: 10 MG, QD
     Route: 048
     Dates: start: 20161130

REACTIONS (5)
  - Pruritus [Unknown]
  - Dysphagia [Unknown]
  - Dry mouth [Unknown]
  - Ear discomfort [Recovered/Resolved]
  - Dry eye [Unknown]

NARRATIVE: CASE EVENT DATE: 20171022
